FAERS Safety Report 13322865 (Version 2)
Quarter: 2017Q1

REPORT INFORMATION
  Report Type: Spontaneous
  Country: FR (occurrence: FR)
  Receive Date: 20170309
  Receipt Date: 20170314
  Transmission Date: 20170428
  Serious: Yes (Hospitalization, Disabling)
  Sender: FDA-Public Use
  Company Number: FR-SA-2017SA031489

PATIENT
  Age: 63 Year
  Sex: Male
  Weight: 87 kg

DRUGS (14)
  1. UVEDOSE [Concomitant]
     Active Substance: CHOLECALCIFEROL
  2. CRESTOR [Concomitant]
     Active Substance: ROSUVASTATIN CALCIUM
  3. KAYEXALATE [Concomitant]
     Active Substance: SODIUM POLYSTYRENE SULFONATE
  4. RAMIPRIL. [Concomitant]
     Active Substance: RAMIPRIL
  5. PULMICORT TURBUHALER [Concomitant]
     Active Substance: BUDESONIDE
  6. CELLCEPT [Concomitant]
     Active Substance: MYCOPHENOLATE MOFETIL\MYCOPHENOLATE MOFETIL HYDROCHLORIDE
  7. FABRAZYME [Suspect]
     Active Substance: AGALSIDASE BETA
     Indication: FABRY^S DISEASE
     Dosage: DOSE: 3 BOTTLES PER INFUSION
     Route: 041
     Dates: start: 20170123
  8. FABRAZYME [Suspect]
     Active Substance: AGALSIDASE BETA
     Indication: FABRY^S DISEASE
     Dosage: DOSE: LESS THAN  3 BOTTLES
     Route: 041
     Dates: start: 19990618, end: 20170123
  9. ADVAGRAF [Concomitant]
     Active Substance: TACROLIMUS
  10. LERCAN [Concomitant]
     Active Substance: LERCANIDIPINE
  11. SPIRIVA [Concomitant]
     Active Substance: TIOTROPIUM BROMIDE MONOHYDRATE
  12. SODIUM BICARBONATE. [Concomitant]
     Active Substance: SODIUM BICARBONATE
  13. TENORMIN [Concomitant]
     Active Substance: ATENOLOL
  14. ADENURIC [Concomitant]
     Active Substance: FEBUXOSTAT

REACTIONS (4)
  - Product use issue [Unknown]
  - Paraesthesia [Unknown]
  - Optic ischaemic neuropathy [Unknown]
  - Condition aggravated [Unknown]

NARRATIVE: CASE EVENT DATE: 20170119
